FAERS Safety Report 7868368-1 (Version None)
Quarter: 2011Q4

REPORT INFORMATION
  Report Type: 
  Country: None (occurrence: None)
  Receive Date: 20111028
  Receipt Date: 20101220
  Transmission Date: 20120403
  Serious: No
  Sender: FDA-Public Use
  Company Number: US-AMGEN-USASP2010010384

PATIENT
  Age: 22 Year
  Sex: Male

DRUGS (1)
  1. ENBREL [Suspect]
     Indication: ANKYLOSING SPONDYLITIS
     Route: 058
     Dates: start: 20100402

REACTIONS (5)
  - VOMITING [None]
  - NAUSEA [None]
  - PYREXIA [None]
  - GASTROENTERITIS VIRAL [None]
  - DIARRHOEA [None]
